FAERS Safety Report 4541351-X (Version None)
Quarter: 2004Q4

REPORT INFORMATION
  Report Type: 
  Country: None (occurrence: None)
  Receive Date: 20041227
  Receipt Date: 20041026
  Transmission Date: 20050328
  Serious: Yes (Disabling)
  Sender: FDA-Public Use
  Company Number: ACO_0013_2004

PATIENT
  Age: 47 Year
  Sex: Male
  Weight: 88.9 kg

DRUGS (3)
  1. ZANAFLEX [Suspect]
     Indication: MUSCLE CRAMP
     Dosage: 2 MG QDAY PO
     Route: 048
     Dates: start: 20031001, end: 20031007
  2. IBUPROFEN [Concomitant]
  3. CIALIS [Concomitant]

REACTIONS (7)
  - DRY MOUTH [None]
  - FATIGUE [None]
  - HEADACHE [None]
  - INSOMNIA [None]
  - MUSCLE CRAMP [None]
  - NIGHTMARE [None]
  - SOMNOLENCE [None]
